FAERS Safety Report 14822139 (Version 2)
Quarter: 2018Q2

REPORT INFORMATION
  Report Type: Spontaneous
  Country: JP (occurrence: JP)
  Receive Date: 20180427
  Receipt Date: 20180529
  Transmission Date: 20180711
  Serious: Yes (Death)
  Sender: FDA-Public Use
  Company Number: JP-ELI_LILLY_AND_COMPANY-JP201804013488

PATIENT
  Age: 72 Year
  Sex: Male

DRUGS (6)
  1. WARFARIN                           /00014803/ [Concomitant]
     Active Substance: WARFARIN
     Dosage: 3 MG, UNKNOWN
     Route: 048
     Dates: start: 20160909
  2. SPIOLTO RESPIMAT [Concomitant]
     Active Substance: OLODATEROL HYDROCHLORIDE\TIOTROPIUM BROMIDE MONOHYDRATE
     Dosage: 10 UG, DAILY
     Route: 055
     Dates: start: 20170629
  3. ADCIRCA [Suspect]
     Active Substance: TADALAFIL
     Indication: PRODUCT USED FOR UNKNOWN INDICATION
     Dosage: 40 MG, DAILY
     Route: 048
     Dates: start: 20160909, end: 201803
  4. TRACLEER [Concomitant]
     Active Substance: BOSENTAN
     Indication: PRODUCT USED FOR UNKNOWN INDICATION
     Dosage: 250 MG, DAILY
     Route: 048
     Dates: start: 20160909
  5. AMLODIPINE                         /00972402/ [Concomitant]
     Active Substance: AMLODIPINE BESYLATE
     Dosage: 2.5 MG, DAILY
     Route: 048
     Dates: start: 20170824
  6. BERAPROST [Concomitant]
     Active Substance: BERAPROST
     Dosage: 60 UG, UNKNOWN
     Route: 048
     Dates: start: 20170727

REACTIONS (1)
  - Lung disorder [Fatal]

NARRATIVE: CASE EVENT DATE: 201803
